FAERS Safety Report 24079794 (Version 2)
Quarter: 2024Q3

REPORT INFORMATION
  Report Type: Report from Study
  Country: CA (occurrence: CA)
  Receive Date: 20240711
  Receipt Date: 20240827
  Transmission Date: 20241016
  Serious: No
  Sender: OTSUKA
  Company Number: CA-OTSUKA-2024_010267

PATIENT
  Sex: Female

DRUGS (1)
  1. ARIPIPRAZOLE [Suspect]
     Active Substance: ARIPIPRAZOLE
     Indication: Product used for unknown indication
     Dosage: 400 MG EVERY 28 DAYS
     Route: 030
     Dates: start: 202310

REACTIONS (1)
  - Poor personal hygiene [Unknown]
